FAERS Safety Report 9796876 (Version 1)
Quarter: 2014Q1

REPORT INFORMATION
  Report Type: Spontaneous
  Country: FR (occurrence: FR)
  Receive Date: 20140103
  Receipt Date: 20140103
  Transmission Date: 20141002
  Serious: Yes (Other)
  Sender: FDA-Public Use
  Company Number: PHHY2013FR154244

PATIENT
  Age: 89 Year
  Sex: Female

DRUGS (7)
  1. TRAMADOL SANDOZ [Suspect]
     Indication: LIGAMENT SPRAIN
     Dosage: 1 DF, IN THE MORNING AND EVENING
  2. TRIMEBUTINE [Concomitant]
  3. ESBERIVEN [Concomitant]
     Route: 065
  4. PIASCLEDINE [Concomitant]
     Route: 065
  5. OMEPRAZOLE [Concomitant]
     Route: 065
  6. PLAVIX [Concomitant]
     Dosage: 1 DF, DAILY
  7. RAMIPRIL [Concomitant]
     Dosage: 1 DF, IN THE MORNING AND EVENING
     Route: 065

REACTIONS (3)
  - Local swelling [Unknown]
  - Blood pressure systolic decreased [Unknown]
  - Somnolence [Unknown]
